FAERS Safety Report 24192742 (Version 1)
Quarter: 2024Q3

REPORT INFORMATION
  Report Type: Report from Study
  Country: FR (occurrence: FR)
  Receive Date: 20240809
  Receipt Date: 20240809
  Transmission Date: 20241017
  Serious: Yes (Death, Other)
  Sender: ROCHE
  Company Number: FR-ROCHE-10000045193

PATIENT

DRUGS (4)
  1. ATEZOLIZUMAB [Suspect]
     Active Substance: ATEZOLIZUMAB
     Indication: Small cell lung cancer extensive stage
     Route: 065
  2. DURVALUMAB [Suspect]
     Active Substance: DURVALUMAB
     Indication: Small cell lung cancer extensive stage
     Route: 065
  3. ETOPOSIDE [Suspect]
     Active Substance: ETOPOSIDE
     Indication: Small cell lung cancer extensive stage
     Route: 065
  4. CARBOPLATIN [Suspect]
     Active Substance: CARBOPLATIN
     Indication: Small cell lung cancer extensive stage
     Route: 065

REACTIONS (9)
  - Death [Fatal]
  - Febrile neutropenia [Unknown]
  - Sepsis [Unknown]
  - Anaemia [Unknown]
  - Renal failure [Unknown]
  - Tinnitus [Unknown]
  - Gastrointestinal toxicity [Unknown]
  - Fatigue [Unknown]
  - Cardiac failure [Unknown]
